FAERS Safety Report 8069917-3 (Version None)
Quarter: 2012Q1

REPORT INFORMATION
  Report Type: 
  Country: None (occurrence: None)
  Receive Date: 20120125
  Receipt Date: 20120118
  Transmission Date: 20120608
  Serious: Yes (Death, Hospitalization)
  Sender: FDA-Public Use
  Company Number: JP-ASTELLAS-2012US000701

PATIENT
  Sex: Female
  Weight: 45 kg

DRUGS (8)
  1. DECADRON [Concomitant]
     Indication: PRODUCT USED FOR UNKNOWN INDICATION
     Dosage: 3 MG, UID/QD
     Route: 048
     Dates: start: 20090422, end: 20090428
  2. HYDROCHLOROTHIAZIDE/LOSARTAN POSTASSIUM [Concomitant]
     Indication: PRODUCT USED FOR UNKNOWN INDICATION
     Dosage: 12.5 MG, UNKNOWN/D
     Route: 048
     Dates: start: 20090328
  3. ZOLPIDEM [Concomitant]
     Indication: PRODUCT USED FOR UNKNOWN INDICATION
     Dosage: 5 MG, UID/QD
     Route: 048
     Dates: end: 20090528
  4. URSO 250 [Concomitant]
     Indication: PRODUCT USED FOR UNKNOWN INDICATION
     Dosage: 100 MG, UID/QD
     Route: 048
     Dates: start: 20090421, end: 20090528
  5. ERLOTINIB HYDROCHLORIDE [Suspect]
     Dosage: 50 MG, UID/QD
     Route: 048
     Dates: start: 20090422, end: 20090527
  6. DECADRON [Concomitant]
     Dosage: 2 MG, UID/QD
     Route: 048
     Dates: start: 20090429, end: 20090511
  7. DECADRON [Concomitant]
     Dosage: 1.5 MG, UID/QD
     Route: 048
     Dates: start: 20090512, end: 20090601
  8. ERLOTINIB HYDROCHLORIDE [Suspect]
     Indication: NON-SMALL CELL LUNG CANCER STAGE IV
     Dosage: 150 MG, UID/QD
     Route: 048
     Dates: start: 20090410, end: 20090421

REACTIONS (4)
  - DISSEMINATED INTRAVASCULAR COAGULATION [None]
  - MULTI-ORGAN FAILURE [None]
  - LUNG DISORDER [None]
  - FUNGAL INFECTION [None]
